FAERS Safety Report 4980079-9 (Version None)
Quarter: 2006Q2

REPORT INFORMATION
  Report Type: 
  Country: None (occurrence: None)
  Receive Date: 20060421
  Receipt Date: 20060403
  Transmission Date: 20061013
  Serious: Yes (Hospitalization, Other)
  Sender: FDA-Public Use
  Company Number: JP-MERCK-0604USA00508

PATIENT
  Age: 12 Month
  Sex: Female
  Weight: 4 kg

DRUGS (12)
  1. EURODIN [Concomitant]
     Indication: HYPERTONIA
     Route: 048
     Dates: start: 20051101
  2. LAC-B [Concomitant]
     Indication: CONGENITAL INTESTINAL MALFORMATION
     Route: 048
     Dates: start: 20051117
  3. PRIMAXIN [Suspect]
     Indication: SEPSIS
     Route: 042
     Dates: start: 20060218, end: 20060317
  4. HABEKACIN [Concomitant]
     Indication: CATHETER RELATED INFECTION
     Route: 042
     Dates: start: 20060217, end: 20060317
  5. HABEKACIN [Concomitant]
     Indication: SEPSIS
     Route: 042
     Dates: start: 20060217, end: 20060317
  6. ZONISAMIDE [Concomitant]
     Indication: NYSTAGMUS
     Route: 048
     Dates: start: 20050306
  7. ZONISAMIDE [Concomitant]
     Indication: PERIVENTRICULAR LEUKOMALACIA
     Route: 048
     Dates: start: 20050306
  8. CERCINE [Concomitant]
     Indication: HYPERTONIA
     Route: 048
     Dates: start: 20041222
  9. ONEALFA [Concomitant]
     Indication: CONGENITAL INTESTINAL MALFORMATION
     Route: 048
     Dates: start: 20050130
  10. ONEALFA [Concomitant]
     Indication: OSTEOPENIA
     Route: 048
     Dates: start: 20050130
  11. MARZULENE-S [Concomitant]
     Indication: GASTRITIS
     Route: 048
     Dates: start: 20050117
  12. PRIMAXIN [Suspect]
     Indication: CATHETER RELATED INFECTION
     Route: 042
     Dates: start: 20060218, end: 20060317

REACTIONS (2)
  - EOSINOPHIL COUNT INCREASED [None]
  - NEUTROPHIL COUNT DECREASED [None]
